FAERS Safety Report 8844058 (Version 2)
Quarter: 2012Q4

REPORT INFORMATION
  Report Type: 
  Country: SE (occurrence: SE)
  Receive Date: 20121016
  Receipt Date: 20121114
  Transmission Date: 20130627
  Serious: Yes (Other)
  Sender: FDA-Public Use
  Company Number: SE-PFIZER INC-2012254145

PATIENT
  Age: 71 Year
  Sex: Female

DRUGS (2)
  1. LIPITOR [Suspect]
     Dosage: 10 mg, 1x/day
  2. WARAN [Concomitant]
     Dosage: UNK
     Dates: start: 2005

REACTIONS (2)
  - Polyneuropathy [Not Recovered/Not Resolved]
  - Breast cancer [Unknown]
